FAERS Safety Report 21258915 (Version 1)
Quarter: 2022Q3

REPORT INFORMATION
  Report Type: Spontaneous
  Country: US (occurrence: None)
  Receive Date: 20220825
  Receipt Date: 20220825
  Transmission Date: 20221026
  Serious: Yes (Hospitalization)
  Sender: FDA-Public Use
  Company Number: None

PATIENT
  Sex: Female

DRUGS (2)
  1. HUMIRA [Suspect]
     Active Substance: ADALIMUMAB
     Indication: Psoriasis
     Dosage: OTHER QUANTITY : 40MG/0.8ML;?FREQUENCY : EVERY OTHER WEEK;?
     Route: 058
     Dates: start: 20171215
  2. WESTCORT OIN [Concomitant]

REACTIONS (1)
  - Foot operation [None]
